FAERS Safety Report 5828164-3 (Version None)
Quarter: 2008Q3

REPORT INFORMATION
  Report Type: 
  Country: None (occurrence: None)
  Receive Date: 20080729
  Receipt Date: 20080717
  Transmission Date: 20090109
  Serious: Yes (Hospitalization)
  Sender: FDA-Public Use
  Company Number: 1000000220

PATIENT
  Age: 76 Year
  Sex: Female

DRUGS (6)
  1. MEMANTINE HCL [Suspect]
     Dates: start: 20030301
  2. ARICEPT [Suspect]
     Dates: start: 20020101, end: 20050401
  3. ZYPREXA [Suspect]
     Dates: start: 20031201
  4. TIAPRIDE [Suspect]
     Indication: DYSTONIA
     Dates: start: 20030101
  5. MEPROBAMATE [Concomitant]
  6. TRIMEPRAZINE TAB [Concomitant]

REACTIONS (2)
  - DYSTONIA [None]
  - PLEUROTHOTONUS [None]
